FAERS Safety Report 6659912-0 (Version None)
Quarter: 2010Q1

REPORT INFORMATION
  Report Type: 
  Country: None (occurrence: None)
  Receive Date: 20100330
  Receipt Date: 20100330
  Transmission Date: 20100710
  Serious: No
  Sender: FDA-Public Use
  Company Number: None

PATIENT
  Age: 48 Year
  Sex: Female
  Weight: 56.1 kg

DRUGS (1)
  1. MAGNEVIST [Suspect]
     Indication: MULTIPLE SCLEROSIS
     Dosage: 11 ML IV
     Route: 042
     Dates: start: 20100324, end: 20100324

REACTIONS (3)
  - CONTRAST MEDIA REACTION [None]
  - INJECTION SITE URTICARIA [None]
  - SNEEZING [None]
